FAERS Safety Report 20399856 (Version 2)
Quarter: 2022Q1

REPORT INFORMATION
  Report Type: Spontaneous
  Country: US (occurrence: US)
  Receive Date: 20220131
  Receipt Date: 20220201
  Transmission Date: 20220424
  Serious: Yes (Hospitalization)
  Sender: FDA-Public Use
  Company Number: US-ABBVIE-21K-163-3993465-00

PATIENT
  Age: 82 Year
  Sex: Female
  Weight: 62.6 kg

DRUGS (2)
  1. HUMIRA [Suspect]
     Active Substance: ADALIMUMAB
     Indication: Rheumatoid arthritis
     Route: 058
  2. XELJANZ XR [Suspect]
     Active Substance: TOFACITINIB CITRATE
     Indication: Rheumatoid arthritis
     Dosage: 11 MILLIGRAM
     Route: 048
     Dates: start: 2017, end: 202107

REACTIONS (6)
  - Cellulitis [Recovered/Resolved]
  - Scab [Recovering/Resolving]
  - Limb injury [Recovering/Resolving]
  - Pruritus [Unknown]
  - Fungal skin infection [Recovering/Resolving]
  - Rash [Unknown]

NARRATIVE: CASE EVENT DATE: 20201101
